FAERS Safety Report 22336899 (Version 2)
Quarter: 2023Q2

REPORT INFORMATION
  Report Type: Spontaneous
  Country: US (occurrence: US)
  Receive Date: 20230518
  Receipt Date: 20230608
  Transmission Date: 20230721
  Serious: No
  Sender: FDA-Public Use
  Company Number: US-MYLANLABS-2023M1049516

PATIENT
  Sex: Male

DRUGS (1)
  1. SEMGLEE (INSULIN GLARGINE-YFGN) [Suspect]
     Active Substance: INSULIN GLARGINE-YFGN
     Indication: Type 2 diabetes mellitus
     Dosage: UNK UNK, BID
     Route: 058

REACTIONS (2)
  - Off label use [Unknown]
  - Device mechanical issue [Unknown]
